FAERS Safety Report 19269605 (Version 1)
Quarter: 2021Q2

REPORT INFORMATION
  Report Type: Spontaneous
  Country: US (occurrence: US)
  Receive Date: 20210518
  Receipt Date: 20210518
  Transmission Date: 20210717
  Serious: No
  Sender: FDA-Public Use
  Company Number: US-GLAXOSMITHKLINE-US2021101437

PATIENT
  Sex: Female

DRUGS (1)
  1. LAMICTAL [Suspect]
     Active Substance: LAMOTRIGINE
     Indication: SEIZURE
     Dosage: 125 MG, BID
     Route: 048
     Dates: start: 2000

REACTIONS (6)
  - Dysmenorrhoea [Unknown]
  - Anger [Not Recovered/Not Resolved]
  - Intermenstrual bleeding [Not Recovered/Not Resolved]
  - Menstrual disorder [Unknown]
  - Blood test abnormal [Unknown]
  - Serum ferritin decreased [Unknown]

NARRATIVE: CASE EVENT DATE: 2016
